FAERS Safety Report 8172672-X (Version None)
Quarter: 2012Q1

REPORT INFORMATION
  Report Type: 
  Country: None (occurrence: None)
  Receive Date: 20120229
  Receipt Date: 20120226
  Transmission Date: 20120608
  Serious: No
  Sender: FDA-Public Use
  Company Number: US-PFIZER INC-2012050316

PATIENT
  Sex: Female
  Weight: 72.562 kg

DRUGS (1)
  1. IBUPROFEN (ADVIL) [Suspect]
     Indication: PROCEDURAL PAIN
     Dosage: 400 MG TO 600 MG EVERY FOUR TO SIX HOURS
     Dates: start: 20120223

REACTIONS (3)
  - SWELLING FACE [None]
  - ERYTHEMA [None]
  - PRURITUS [None]
